FAERS Safety Report 4491853-X (Version None)
Quarter: 2004Q4

REPORT INFORMATION
  Report Type: 
  Country: None (occurrence: None)
  Receive Date: 20041103
  Receipt Date: 20040708
  Transmission Date: 20050328
  Serious: Yes (Other)
  Sender: FDA-Public Use
  Company Number: PHEH2004US07533

PATIENT
  Sex: Female

DRUGS (1)
  1. STARLIX [Suspect]
     Dosage: 120 MG, TID
     Route: 048

REACTIONS (3)
  - BLOOD POTASSIUM INCREASED [None]
  - DIZZINESS [None]
  - RENAL DISORDER [None]
